FAERS Safety Report 14427444 (Version 2)
Quarter: 2019Q1

REPORT INFORMATION
  Report Type: Spontaneous
  Country: US (occurrence: US)
  Receive Date: 20180123
  Receipt Date: 20190303
  Transmission Date: 20190417
  Serious: No
  Sender: FDA-Public Use
  Company Number: US-IMPAX LABORATORIES, INC-2017-IPXL-03604

PATIENT
  Age: 45 Year
  Sex: Male

DRUGS (1)
  1. RYTARY [Suspect]
     Active Substance: CARBIDOPA\LEVODOPA
     Indication: PARKINSON^S DISEASE
     Dosage: 48.75/195 MG, TWO CAPSULES FOUR TIMES PER DAY
     Route: 048
     Dates: start: 20170526, end: 20170606

REACTIONS (2)
  - Dyskinesia [Unknown]
  - Restlessness [Recovering/Resolving]

NARRATIVE: CASE EVENT DATE: 201705
